FAERS Safety Report 20171747 (Version 5)
Quarter: 2022Q1

REPORT INFORMATION
  Report Type: Report from Study
  Country: DE (occurrence: DE)
  Receive Date: 20211210
  Receipt Date: 20220218
  Transmission Date: 20220423
  Serious: Yes (Death, Hospitalization)
  Sender: FDA-Public Use
  Company Number: DE-NOVARTISPH-NVSC2021DE281259

PATIENT
  Age: 59 Year
  Sex: Male

DRUGS (8)
  1. DABRAFENIB [Suspect]
     Active Substance: DABRAFENIB
     Indication: Malignant melanoma
     Dosage: 200 MG
     Route: 065
     Dates: start: 20210224, end: 20211104
  2. DABRAFENIB [Suspect]
     Active Substance: DABRAFENIB
     Dosage: 50 MG (2-0-2, 2 DFS IN THE MORNING AND 2 DFS IN THE EVENING)
     Route: 048
     Dates: start: 202109, end: 20211104
  3. TRAMETINIB [Suspect]
     Active Substance: TRAMETINIB
     Indication: Malignant melanoma
     Dosage: 1.5 MG
     Route: 065
     Dates: start: 20210224, end: 20211104
  4. TRAMETINIB [Suspect]
     Active Substance: TRAMETINIB
     Dosage: 0.5 MG (0-0-3, 3 DFS IN THE EVENING)
     Route: 048
     Dates: start: 202109, end: 20211104
  5. FERROUS GLUCONATE [Concomitant]
     Active Substance: FERROUS GLUCONATE
     Indication: Product used for unknown indication
     Dosage: 35 DRP, BID
     Route: 065
  6. ALDACTONE [Concomitant]
     Active Substance: SPIRONOLACTONE
     Indication: Product used for unknown indication
     Dosage: 25 MG
     Route: 065
  7. NEBIVOLOL [Concomitant]
     Active Substance: NEBIVOLOL
     Indication: Product used for unknown indication
     Dosage: 5 MG (HALF A DF IN THE MORNING)
     Route: 065
  8. LERCANIDIPINE [Concomitant]
     Active Substance: LERCANIDIPINE
     Indication: Product used for unknown indication
     Dosage: 20 MG, QD (1-0-0)
     Route: 065

REACTIONS (4)
  - Metastases to central nervous system [Fatal]
  - General physical health deterioration [Fatal]
  - Malignant melanoma [Fatal]
  - Malignant neoplasm progression [Fatal]

NARRATIVE: CASE EVENT DATE: 20211105
